APPROVED DRUG PRODUCT: EVEROLIMUS
Active Ingredient: EVEROLIMUS
Strength: 10MG
Dosage Form/Route: TABLET;ORAL
Application: A212936 | Product #004
Applicant: MYLAN PHARMACEUTICALS INC
Approved: Jun 8, 2020 | RLD: No | RS: No | Type: DISCN